FAERS Safety Report 10570529 (Version 2)
Quarter: 2014Q4

REPORT INFORMATION
  Report Type: Spontaneous
  Country: US (occurrence: PT)
  Receive Date: 20141107
  Receipt Date: 20141107
  Transmission Date: 20150529
  Serious: Yes (Hospitalization, Other)
  Sender: FDA-Public Use
  Company Number: PT-CELGENE-130-21880-14042257

PATIENT
  Age: 71 Year
  Sex: Male
  Weight: 78.9 kg

DRUGS (42)
  1. FLUDEX [Concomitant]
     Active Substance: INDAPAMIDE
     Indication: HYPERTENSION
     Route: 048
     Dates: start: 2003
  2. PARACETAMOL [Concomitant]
     Active Substance: ACETAMINOPHEN
     Indication: PYREXIA
     Route: 041
     Dates: start: 20140303, end: 20140312
  3. DUOTRAV [Concomitant]
     Active Substance: TIMOLOL\TRAVOPROST
     Indication: GLAUCOMA
     Route: 047
     Dates: start: 2010
  4. METFORMIN [Concomitant]
     Active Substance: METFORMIN HYDROCHLORIDE
     Indication: TYPE 2 DIABETES MELLITUS
     Route: 048
     Dates: start: 20130702
  5. IBUPROFEN. [Concomitant]
     Active Substance: IBUPROFEN
     Indication: PAIN
     Route: 048
     Dates: start: 20131210
  6. REVLIMID [Suspect]
     Active Substance: LENALIDOMIDE
     Route: 048
     Dates: start: 20140521
  7. DEXAMETHASONE. [Suspect]
     Active Substance: DEXAMETHASONE
     Indication: PLASMA CELL MYELOMA
     Route: 048
     Dates: start: 20130528, end: 20140204
  8. BLINDED MLN9708 [Suspect]
     Active Substance: IXAZOMIB
     Route: 048
     Dates: start: 20140521
  9. BLINDED MLN9708 [Suspect]
     Active Substance: IXAZOMIB
     Route: 065
  10. LANSOPRAZOL [Concomitant]
     Active Substance: LANSOPRAZOLE
     Indication: DYSPEPSIA
     Route: 048
     Dates: start: 201101
  11. LANSOPRAZOL [Concomitant]
     Active Substance: LANSOPRAZOLE
     Route: 065
  12. GLICLAZIDE [Concomitant]
     Active Substance: GLICLAZIDE
     Indication: TYPE 2 DIABETES MELLITUS
     Route: 048
     Dates: start: 20130528
  13. DROPERIDOL. [Concomitant]
     Active Substance: DROPERIDOL
     Indication: PAIN
     Dosage: `
     Route: 041
     Dates: start: 20140303, end: 20140312
  14. DEXAMETHASONE. [Suspect]
     Active Substance: DEXAMETHASONE
     Route: 048
     Dates: start: 20140521
  15. PARACETAMOL [Concomitant]
     Active Substance: ACETAMINOPHEN
     Indication: BONE PAIN
     Route: 048
     Dates: start: 201105
  16. CITALOPRAM [Concomitant]
     Active Substance: CITALOPRAM HYDROBROMIDE
     Indication: DEPRESSION
     Route: 048
     Dates: start: 20111108
  17. CITALOPRAM [Concomitant]
     Active Substance: CITALOPRAM HYDROBROMIDE
     Route: 065
  18. ACETYLSALICYLIC ACID [Concomitant]
     Active Substance: ASPIRIN
     Indication: PROPHYLAXIS
     Route: 048
     Dates: start: 2011
  19. ACICLOVIR [Concomitant]
     Active Substance: ACYCLOVIR
     Route: 065
  20. GLICLAZIDE [Concomitant]
     Active Substance: GLICLAZIDE
     Route: 065
  21. ACETYLSALICYLIC ACID [Concomitant]
     Active Substance: ASPIRIN
     Route: 065
  22. DIAZEPAM. [Concomitant]
     Active Substance: DIAZEPAM
     Indication: ANXIETY
     Route: 048
     Dates: start: 20131112
  23. DIAZEPAM. [Concomitant]
     Active Substance: DIAZEPAM
     Route: 065
  24. IBUPROFEN. [Concomitant]
     Active Substance: IBUPROFEN
     Route: 065
  25. TRAVEX [Concomitant]
     Indication: BACK PAIN
     Route: 065
  26. REVLIMID [Suspect]
     Active Substance: LENALIDOMIDE
     Indication: PLASMA CELL MYELOMA
     Route: 048
     Dates: start: 20130528, end: 20140204
  27. PARACETAMOL [Concomitant]
     Active Substance: ACETAMINOPHEN
     Route: 065
  28. TRAVEX [Concomitant]
     Indication: PAIN
     Dosage: MEQ
     Route: 048
     Dates: start: 20140131
  29. TRAVEX [Concomitant]
     Indication: BACK PAIN
     Route: 065
  30. DEXAMETHASONE. [Suspect]
     Active Substance: DEXAMETHASONE
     Route: 065
  31. COTRIMAXAZOL [Concomitant]
     Indication: PROPHYLAXIS
     Route: 048
     Dates: start: 20130503
  32. LORAZEPAM. [Concomitant]
     Active Substance: LORAZEPAM
     Indication: ANXIETY
     Route: 048
     Dates: start: 20130528
  33. DROPERIDOL. [Concomitant]
     Active Substance: DROPERIDOL
     Route: 065
  34. COTRIMAXAZOL [Concomitant]
     Route: 065
  35. ACICLOVIR [Concomitant]
     Active Substance: ACYCLOVIR
     Indication: PROPHYLAXIS
     Route: 048
     Dates: start: 20130527
  36. METFORMIN [Concomitant]
     Active Substance: METFORMIN HYDROCHLORIDE
     Route: 065
  37. REVLIMID [Suspect]
     Active Substance: LENALIDOMIDE
     Route: 065
  38. BLINDED MLN9708 [Suspect]
     Active Substance: IXAZOMIB
     Indication: PLASMA CELL MYELOMA
     Route: 048
     Dates: start: 20130528, end: 20140114
  39. FLUDEX [Concomitant]
     Active Substance: INDAPAMIDE
     Route: 065
  40. DUOTRAV [Concomitant]
     Active Substance: TIMOLOL\TRAVOPROST
     Route: 065
  41. LORAZEPAM. [Concomitant]
     Active Substance: LORAZEPAM
     Route: 065
  42. TRAVEX [Concomitant]
     Indication: BONE PAIN
     Route: 065

REACTIONS (1)
  - Colon cancer stage II [Recovered/Resolved with Sequelae]

NARRATIVE: CASE EVENT DATE: 20140130
